FAERS Safety Report 22085994 (Version 1)
Quarter: 2023Q1

REPORT INFORMATION
  Report Type: Spontaneous
  Country: US (occurrence: None)
  Receive Date: 20230310
  Receipt Date: 20230310
  Transmission Date: 20230418
  Serious: Yes (Other)
  Sender: FDA-Public Use
  Company Number: None

PATIENT
  Sex: Female

DRUGS (3)
  1. PULMOZYME [Suspect]
     Active Substance: DORNASE ALFA
     Indication: Cystic fibrosis
     Route: 055
     Dates: start: 20230207
  2. MAGNESIUM SU INJ 50%; SOD CHL 7% 4ML 4=1 NEB [Concomitant]
  3. TYLENOL PM TAB 25-500MG [Concomitant]

REACTIONS (2)
  - Nephrolithiasis [None]
  - Therapy interrupted [None]
